FAERS Safety Report 11360055 (Version 4)
Quarter: 2016Q3

REPORT INFORMATION
  Report Type: Report from Study
  Country: PL (occurrence: PL)
  Receive Date: 20150810
  Receipt Date: 20160727
  Transmission Date: 20161109
  Serious: Yes (Hospitalization)
  Sender: FDA-Public Use
  Company Number: PL-ROCHE-1613736

PATIENT
  Age: 51 Year
  Sex: Male

DRUGS (62)
  1. BENDAMUSTINE [Suspect]
     Active Substance: BENDAMUSTINE
     Dosage: CYCLE 1 DAY 2
     Route: 042
     Dates: start: 20150101, end: 20150101
  2. BENDAMUSTINE [Suspect]
     Active Substance: BENDAMUSTINE
     Dosage: CYCLE 3, DAY 1,
     Route: 042
     Dates: start: 20150311, end: 20150311
  3. BENDAMUSTINE [Suspect]
     Active Substance: BENDAMUSTINE
     Dosage: CYCLE 3, DAY 2
     Route: 042
     Dates: start: 20150312, end: 20150312
  4. CLEMASTINE [Concomitant]
     Active Substance: CLEMASTINE
     Route: 048
     Dates: start: 20150114, end: 20150114
  5. BIORACEF [Concomitant]
     Route: 048
     Dates: start: 20150107, end: 20150107
  6. VITAMIN B6 [Concomitant]
     Active Substance: PYRIDOXINE HYDROCHLORIDE
     Route: 048
     Dates: start: 20150128, end: 20150702
  7. NIVESTIM [Concomitant]
     Active Substance: FILGRASTIM
     Route: 058
     Dates: start: 20150105, end: 20150106
  8. DEXAMETHASONE. [Concomitant]
     Active Substance: DEXAMETHASONE
     Route: 048
     Dates: start: 20141230, end: 20141230
  9. DEXAVEN [Concomitant]
     Active Substance: DEXAMETHASONE
     Route: 042
     Dates: start: 20150211, end: 20150211
  10. PARACETAMOL [Concomitant]
     Active Substance: ACETAMINOPHEN
     Route: 048
     Dates: start: 20150107, end: 20150107
  11. CEFUROXIME. [Concomitant]
     Active Substance: CEFUROXIME
     Route: 042
     Dates: start: 20150102, end: 20150107
  12. ENCORTON [Concomitant]
     Active Substance: PREDNISONE
     Route: 048
     Dates: start: 20150713, end: 20150717
  13. OBINUTUZUMAB [Suspect]
     Active Substance: OBINUTUZUMAB
     Dosage: CYCLE 1, DAY 2
     Route: 042
     Dates: start: 20150101, end: 20150101
  14. DEXAVEN [Concomitant]
     Active Substance: DEXAMETHASONE
     Route: 042
     Dates: start: 20150102, end: 20150102
  15. DEXAVEN [Concomitant]
     Active Substance: DEXAMETHASONE
     Route: 042
     Dates: start: 20150101, end: 20150101
  16. DEXAVEN [Concomitant]
     Active Substance: DEXAMETHASONE
     Route: 042
     Dates: start: 20150107, end: 20150107
  17. PARACETAMOL [Concomitant]
     Active Substance: ACETAMINOPHEN
     Route: 048
     Dates: start: 20141231, end: 20150104
  18. FASTURTEC [Concomitant]
     Active Substance: RASBURICASE
     Route: 042
     Dates: start: 20150103, end: 20150103
  19. ENCORTON [Concomitant]
     Active Substance: PREDNISONE
     Route: 048
     Dates: start: 20150708, end: 20150712
  20. FROMILID UNO [Concomitant]
     Route: 048
     Dates: start: 20151229, end: 20160104
  21. BENDAMUSTINE [Suspect]
     Active Substance: BENDAMUSTINE
     Indication: CHRONIC LYMPHOCYTIC LEUKAEMIA
     Dosage: CYCLE 1 DAY 1, LAST DOSE PRIOR TO SAE WAS TAKEN ON 12/MAR/2015
     Route: 042
     Dates: start: 20141231, end: 20141231
  22. CLEMASTINE [Concomitant]
     Active Substance: CLEMASTINE
     Route: 048
     Dates: start: 20141231, end: 20141231
  23. CLEMASTINE [Concomitant]
     Active Substance: CLEMASTINE
     Route: 048
     Dates: start: 20150107, end: 20150107
  24. PARACETAMOL [Concomitant]
     Active Substance: ACETAMINOPHEN
     Route: 048
     Dates: start: 20150311, end: 20150311
  25. PYRALGIN (POLAND) [Concomitant]
     Route: 042
     Dates: start: 20150102, end: 20150102
  26. MILURIT [Concomitant]
     Active Substance: ALLOPURINOL
     Route: 048
     Dates: start: 20150103, end: 20150127
  27. PLATELETS [Concomitant]
     Active Substance: HUMAN PLATELET, ALLOGENIC
     Route: 042
     Dates: start: 20150209, end: 20150209
  28. NACL .9% [Concomitant]
     Route: 042
     Dates: start: 20150103, end: 20150103
  29. OBINUTUZUMAB [Suspect]
     Active Substance: OBINUTUZUMAB
     Indication: CHRONIC LYMPHOCYTIC LEUKAEMIA
     Dosage: CYCLE 1, DAY 1, LAST DOSE PRIOR TO SAE WAS TAKEN ON 11/MAR/2015
     Route: 042
     Dates: start: 20141231, end: 20141231
  30. OBINUTUZUMAB [Suspect]
     Active Substance: OBINUTUZUMAB
     Dosage: CYCLE 1, DAY 8
     Route: 042
     Dates: start: 20150107, end: 20150107
  31. BENDAMUSTINE [Suspect]
     Active Substance: BENDAMUSTINE
     Dosage: CYCLE 2 DAY 2, TEMPORARILY INTERRUPTED
     Route: 042
     Dates: start: 20150212, end: 20150212
  32. DEXAVEN [Concomitant]
     Active Substance: DEXAMETHASONE
     Route: 042
     Dates: start: 20150114, end: 20150114
  33. PARACETAMOL [Concomitant]
     Active Substance: ACETAMINOPHEN
     Route: 048
     Dates: start: 20150211, end: 20150211
  34. MILURIT [Concomitant]
     Active Substance: ALLOPURINOL
     Route: 048
     Dates: start: 20150217, end: 20150310
  35. CYCLONAMINE [Concomitant]
     Active Substance: ETHAMSYLATE
     Route: 048
     Dates: start: 20150128, end: 20150603
  36. ENCORTON [Concomitant]
     Active Substance: PREDNISONE
     Route: 048
     Dates: start: 20150212, end: 20150408
  37. PLATELETS [Concomitant]
     Active Substance: HUMAN PLATELET, ALLOGENIC
     Route: 042
     Dates: start: 20150211, end: 20150211
  38. NACL .9% [Concomitant]
     Route: 042
     Dates: start: 20150102, end: 20150102
  39. CONTROLOC [Concomitant]
     Active Substance: PANTOPRAZOLE SODIUM
     Route: 048
     Dates: start: 20160217
  40. DEXAVEN [Concomitant]
     Active Substance: DEXAMETHASONE
     Route: 042
     Dates: start: 20141231, end: 20141231
  41. DEXAVEN [Concomitant]
     Active Substance: DEXAMETHASONE
     Route: 042
     Dates: start: 20150311, end: 20150311
  42. CLEMASTINE [Concomitant]
     Active Substance: CLEMASTINE
     Route: 048
     Dates: start: 20150211, end: 20150211
  43. CLEMASTINE [Concomitant]
     Active Substance: CLEMASTINE
     Route: 048
     Dates: start: 20150311, end: 20150311
  44. FASTURTEC [Concomitant]
     Active Substance: RASBURICASE
     Route: 042
     Dates: start: 20150102, end: 20150102
  45. ENCORTON [Concomitant]
     Active Substance: PREDNISONE
     Route: 048
     Dates: start: 20150703, end: 20150707
  46. VITAMIN D3 [Concomitant]
     Active Substance: CHOLECALCIFEROL
     Indication: PROPHYLAXIS
     Route: 048
     Dates: start: 20150828
  47. OBINUTUZUMAB [Suspect]
     Active Substance: OBINUTUZUMAB
     Dosage: CYCLE 1, DAY 15
     Route: 042
     Dates: start: 20150114, end: 20150114
  48. KLACID (POLAND) [Concomitant]
     Route: 048
     Dates: start: 20150102, end: 20150107
  49. MILURIT [Concomitant]
     Active Substance: ALLOPURINOL
     Route: 048
     Dates: start: 20150128, end: 20150208
  50. ENCORTON [Concomitant]
     Active Substance: PREDNISONE
     Route: 048
     Dates: start: 20150409, end: 20150702
  51. CONCOR [Concomitant]
     Active Substance: BISOPROLOL FUMARATE
     Route: 048
     Dates: start: 20150827, end: 20150827
  52. OBINUTUZUMAB [Suspect]
     Active Substance: OBINUTUZUMAB
     Dosage: CYCLE 2, DAY 1
     Route: 042
     Dates: start: 20150211, end: 20150211
  53. OBINUTUZUMAB [Suspect]
     Active Substance: OBINUTUZUMAB
     Dosage: CYCLE 3, DAY 1
     Route: 042
     Dates: start: 20150311, end: 20150311
  54. BENDAMUSTINE [Suspect]
     Active Substance: BENDAMUSTINE
     Dosage: CYCLE 2 DAY 1
     Route: 042
     Dates: start: 20150211, end: 20150211
  55. CLEMASTINE [Concomitant]
     Active Substance: CLEMASTINE
     Route: 048
     Dates: start: 20150101, end: 20150101
  56. PARACETAMOL [Concomitant]
     Active Substance: ACETAMINOPHEN
     Route: 048
     Dates: start: 20150114, end: 20150114
  57. LACIDOFIL [Concomitant]
     Active Substance: LACTOBACILLUS ACIDOPHILUS\LACTOBACILLUS RHAMNOSUS
     Route: 048
     Dates: start: 20150102, end: 20150107
  58. DANAZOL. [Concomitant]
     Active Substance: DANAZOL
     Route: 048
     Dates: start: 20150128, end: 20150702
  59. DANAZOL. [Concomitant]
     Active Substance: DANAZOL
     Route: 048
     Dates: start: 20150703, end: 20150707
  60. FOLIC ACID. [Concomitant]
     Active Substance: FOLIC ACID
     Route: 048
     Dates: start: 20150128, end: 20150702
  61. ACC [Concomitant]
     Active Substance: ACETYLCYSTEINE
     Route: 048
     Dates: start: 20151229, end: 20160104
  62. CONCOR [Concomitant]
     Active Substance: BISOPROLOL FUMARATE
     Route: 048
     Dates: start: 20150828

REACTIONS (1)
  - Interstitial lung disease [Not Recovered/Not Resolved]

NARRATIVE: CASE EVENT DATE: 20150707
